FAERS Safety Report 9881024 (Version 1)
Quarter: 2014Q1

REPORT INFORMATION
  Report Type: Spontaneous
  Country: PH (occurrence: PH)
  Receive Date: 20140207
  Receipt Date: 20140207
  Transmission Date: 20141002
  Serious: Yes (Death)
  Sender: FDA-Public Use
  Company Number: PH-009507513-1402PHL001591

PATIENT
  Age: 92 Year
  Sex: Female

DRUGS (1)
  1. JANUMET [Suspect]
     Dosage: 1 DF,QD, STRENGTH 50/500 UNITS UNSPECIFIED
     Route: 048
     Dates: start: 20121122

REACTIONS (4)
  - Pneumonia [Fatal]
  - Adverse event [Fatal]
  - Bedridden [Unknown]
  - Gastrostomy [Unknown]
